FAERS Safety Report 17358644 (Version 1)
Quarter: 2020Q1

REPORT INFORMATION
  Report Type: Spontaneous
  Country: US (occurrence: US)
  Receive Date: 20200201
  Receipt Date: 20200201
  Transmission Date: 20200409
  Serious: No
  Sender: FDA-Public Use
  Company Number: US-009507513-2001USA011203

PATIENT
  Sex: Female

DRUGS (1)
  1. INTRON A [Suspect]
     Active Substance: INTERFERON ALFA-2B
     Indication: PLEURAL MESOTHELIOMA
     Dosage: 18 MIU 3 ML MDV, 750,000 UNITS (12.5 UNITS ON SYRINGE)
     Route: 058
     Dates: end: 20200113

REACTIONS (1)
  - Product use in unapproved indication [Unknown]
